FAERS Safety Report 11054891 (Version 1)
Quarter: 2015Q2

REPORT INFORMATION
  Report Type: Report from Study
  Country: RU (occurrence: RU)
  Receive Date: 20150422
  Receipt Date: 20150422
  Transmission Date: 20150821
  Serious: Yes (Hospitalization)
  Sender: FDA-Public Use
  Company Number: RU-SA-2013SA114801

PATIENT
  Age: 29 Year
  Sex: Male
  Weight: 72.3 kg

DRUGS (5)
  1. ULCOZOL [Concomitant]
     Route: 041
  2. ALEMTUZUMAB [Suspect]
     Active Substance: ALEMTUZUMAB
     Indication: MULTIPLE SCLEROSIS
     Route: 065
     Dates: start: 201205
  3. REBIF [Concomitant]
     Active Substance: INTERFERON BETA-1A
     Route: 030
     Dates: start: 200903, end: 2011
  4. ALEMTUZUMAB [Suspect]
     Active Substance: ALEMTUZUMAB
     Indication: MULTIPLE SCLEROSIS
     Route: 065
     Dates: start: 201106, end: 201106
  5. AMINOCAPROIC ACID. [Concomitant]
     Active Substance: AMINOCAPROIC ACID

REACTIONS (1)
  - Immune thrombocytopenic purpura [Not Recovered/Not Resolved]

NARRATIVE: CASE EVENT DATE: 20131029
